FAERS Safety Report 8861224 (Version 4)
Quarter: 2013Q1

REPORT INFORMATION
  Report Type: Spontaneous
  Country: US (occurrence: US)
  Receive Date: 20121026
  Receipt Date: 20130117
  Transmission Date: 20140127
  Serious: No
  Sender: FDA-Public Use
  Company Number: US-PFIZER INC-2012267993

PATIENT
  Age: 84 Year
  Sex: Male

DRUGS (6)
  1. CARDURA [Suspect]
     Indication: HYPERTENSION
     Dosage: 4 MG, DAILY AT NIGHT
     Dates: start: 2003
  2. CARDURA [Suspect]
     Indication: PROSTATIC DISORDER
  3. CARDURA [Suspect]
     Indication: BENIGN PROSTATIC HYPERPLASIA
  4. ZOLOFT [Suspect]
     Indication: DEPRESSION
     Dosage: UNK
     Dates: start: 201201
  5. NIASPAN ER [Concomitant]
     Indication: TYPE V HYPERLIPIDAEMIA
     Dosage: UNK
     Dates: start: 200701
  6. DEXILANT [Concomitant]
     Indication: BARRETT^S OESOPHAGUS
     Dosage: UNK
     Dates: start: 201201

REACTIONS (1)
  - Amnesia [Not Recovered/Not Resolved]
